FAERS Safety Report 6323100-8 (Version None)
Quarter: 2009Q3

REPORT INFORMATION
  Report Type: 
  Country: None (occurrence: None)
  Receive Date: 20090824
  Receipt Date: 20090323
  Transmission Date: 20100115
  Serious: No
  Sender: FDA-Public Use
  Company Number: US-ABBOTT-09P-163-0564168-00

PATIENT
  Sex: Male

DRUGS (3)
  1. NIASPAN [Suspect]
     Indication: LOW DENSITY LIPOPROTEIN INCREASED
     Dosage: EVERY NIGHT
     Dates: start: 20090316
  2. CRESTOR [Concomitant]
     Indication: DRUG USE FOR UNKNOWN INDICATION
     Dosage: DAILY
     Route: 048
  3. LISINOPRIL [Concomitant]
     Indication: DRUG USE FOR UNKNOWN INDICATION
     Dosage: DAILY
     Route: 048

REACTIONS (1)
  - HEADACHE [None]
